APPROVED DRUG PRODUCT: PREVYMIS
Active Ingredient: LETERMOVIR
Strength: 240MG
Dosage Form/Route: TABLET;ORAL
Application: N209939 | Product #001
Applicant: MERCK SHARP AND DOHME CORP
Approved: Nov 8, 2017 | RLD: Yes | RS: No | Type: RX

PATENTS:
Patent RE46791 | Expires: Jan 18, 2029

EXCLUSIVITY:
Code: D-189 | Date: Aug 2, 2026
Code: I-916 | Date: Jun 5, 2026
Code: NPP | Date: Aug 30, 2027
Code: ODE-423 | Date: Jun 5, 2030
Code: ODE-495 | Date: Aug 30, 2031
Code: ODE-497 | Date: Aug 30, 2031